FAERS Safety Report 24401668 (Version 1)
Quarter: 2024Q4

REPORT INFORMATION
  Report Type: Spontaneous
  Country: CA (occurrence: CA)
  Receive Date: 20241007
  Receipt Date: 20241007
  Transmission Date: 20250114
  Serious: Yes (Other)
  Sender: ROCHE
  Company Number: CA-ROCHE-10000099057

PATIENT
  Age: 32 Year
  Sex: Female

DRUGS (5)
  1. RITUXIMAB [Suspect]
     Active Substance: RITUXIMAB
     Indication: Relapsing multiple sclerosis
     Route: 042
  2. ACETAMINOPHEN [Concomitant]
     Active Substance: ACETAMINOPHEN
     Indication: Premedication
     Route: 048
  3. DIPHENHYDRAMINE [Concomitant]
     Active Substance: DIPHENHYDRAMINE
     Indication: Product used for unknown indication
     Route: 048
  4. GLATIRAMER ACETATE [Concomitant]
     Active Substance: GLATIRAMER ACETATE
     Indication: Product used for unknown indication
     Route: 058
  5. METHYLPREDNISOLONE SODIUM SUCCINATE [Concomitant]
     Active Substance: METHYLPREDNISOLONE SODIUM SUCCINATE
     Indication: Product used for unknown indication
     Route: 042

REACTIONS (2)
  - Multiple sclerosis [Unknown]
  - Off label use [Unknown]
